FAERS Safety Report 5828637-3 (Version None)
Quarter: 2008Q3

REPORT INFORMATION
  Report Type: 
  Country: None (occurrence: None)
  Receive Date: 20080731
  Receipt Date: 20080724
  Transmission Date: 20090109
  Serious: Yes (Other)
  Sender: FDA-Public Use
  Company Number: B0526381A

PATIENT
  Sex: Male

DRUGS (6)
  1. AVANDIA [Suspect]
     Route: 065
  2. PROPAFENONE HYDROCHLORIDE [Concomitant]
  3. ISCOVER [Concomitant]
  4. ANTIHYPERTENSIVE (UNSPECIFIED) [Concomitant]
  5. GLIMEPIRIDE [Concomitant]
  6. METFORMIN HCL [Concomitant]

REACTIONS (5)
  - ANAEMIA [None]
  - FLUID RETENTION [None]
  - HAEMATOCRIT DECREASED [None]
  - OEDEMA [None]
  - WEIGHT DECREASED [None]
